FAERS Safety Report 6165696-5 (Version None)
Quarter: 2009Q2

REPORT INFORMATION
  Report Type: 
  Country: None (occurrence: None)
  Receive Date: 20090420
  Receipt Date: 20090409
  Transmission Date: 20091009
  Serious: Yes (Other)
  Sender: FDA-Public Use
  Company Number: 2009PV000037

PATIENT
  Sex: Male

DRUGS (1)
  1. DEPOCYT [Suspect]
     Indication: LYMPHOMA
     Dosage: 50 MG;6X;

REACTIONS (1)
  - OPTIC NEUROPATHY [None]
